FAERS Safety Report 24654993 (Version 1)
Quarter: 2024Q4

REPORT INFORMATION
  Report Type: Report from Study
  Country: US (occurrence: US)
  Receive Date: 20241122
  Receipt Date: 20241122
  Transmission Date: 20250114
  Serious: Yes (Other)
  Sender: ABBVIE
  Company Number: US-ABBVIE-5967758

PATIENT
  Age: 50 Year
  Sex: Male
  Weight: 79.378 kg

DRUGS (2)
  1. HUMIRA [Suspect]
     Active Substance: ADALIMUMAB
     Indication: Crohn^s disease
     Dosage: CITRATE FREE.  FORM STRENGTH: 40 MG
     Route: 058
     Dates: start: 202408
  2. HUMIRA [Suspect]
     Active Substance: ADALIMUMAB
     Dosage: CITRATE FREE.  FORM STRENGTH: 40MG
     Route: 058
     Dates: start: 202304, end: 202408

REACTIONS (3)
  - Anal fistula [Recovering/Resolving]
  - Drug resistance [Recovering/Resolving]
  - Erythema [Recovering/Resolving]

NARRATIVE: CASE EVENT DATE: 20240801
